FAERS Safety Report 8506597-4 (Version None)
Quarter: 2012Q3

REPORT INFORMATION
  Report Type: 
  Country: None (occurrence: None)
  Receive Date: 20120702
  Receipt Date: 20120622
  Transmission Date: 20120928
  Serious: Yes (Other)
  Sender: FDA-Public Use
  Company Number: ACO_30840_2012

PATIENT
  Age: 59 Year
  Sex: Female
  Weight: 104.3 kg

DRUGS (7)
  1. AMPYRA [Suspect]
     Indication: GAIT DISTURBANCE
     Dosage: 10 MG, BID, ORAL
     Route: 048
     Dates: start: 20120501
  2. GABAPENTIN [Concomitant]
  3. BACLOFEN [Concomitant]
  4. SPIRONOLACTONE [Concomitant]
  5. TIZANIDINE HCL [Concomitant]
  6. IBUPROFEN [Concomitant]
  7. ALPRAZOLAM [Concomitant]

REACTIONS (3)
  - FEELING DRUNK [None]
  - FOOT FRACTURE [None]
  - ALCOHOL USE [None]
